FAERS Safety Report 17264162 (Version 2)
Quarter: 2020Q1

REPORT INFORMATION
  Report Type: Spontaneous
  Country: US (occurrence: US)
  Receive Date: 20200113
  Receipt Date: 20200114
  Transmission Date: 20200409
  Serious: Yes (Hospitalization, Other)
  Sender: FDA-Public Use
  Company Number: US-SA-2020SA002980

PATIENT
  Age: 76 Year
  Sex: Male

DRUGS (11)
  1. FOLINIC ACID [Suspect]
     Active Substance: LEUCOVORIN
     Indication: SQUAMOUS CELL CARCINOMA OF LUNG
     Dosage: 8 DF, QCY
  2. ATORVASTATIN CALCIUM. [Suspect]
     Active Substance: ATORVASTATIN CALCIUM
     Dosage: UNK
  3. FLUOROURACIL. [Suspect]
     Active Substance: FLUOROURACIL
     Indication: SQUAMOUS CELL CARCINOMA OF LUNG
     Dosage: 8 DF, QCY
  4. FOLINIC ACID [Suspect]
     Active Substance: LEUCOVORIN
     Indication: ADENOCARCINOMA OF COLON
     Dosage: 8 DF, QCY
  5. AVASTIN [Concomitant]
     Active Substance: BEVACIZUMAB
     Indication: ADENOCARCINOMA OF COLON
     Dosage: 8 DF, QCY
  6. AVASTIN [Concomitant]
     Active Substance: BEVACIZUMAB
     Dosage: 8 DF, QCY
  7. OXALIPLATIN. [Suspect]
     Active Substance: OXALIPLATIN
     Indication: SQUAMOUS CELL CARCINOMA OF LUNG
     Dosage: 8 DF, QCY
  8. PREDNISONE. [Suspect]
     Active Substance: PREDNISONE
     Indication: SQUAMOUS CELL CARCINOMA OF LUNG
     Dosage: UNK
  9. OXALIPLATIN. [Suspect]
     Active Substance: OXALIPLATIN
     Indication: ADENOCARCINOMA OF COLON
     Dosage: 8 DF, QCY
  10. FLUOROURACIL. [Suspect]
     Active Substance: FLUOROURACIL
     Indication: ADENOCARCINOMA OF COLON
     Dosage: 8 DF, QCY
  11. OXYGEN. [Concomitant]
     Active Substance: OXYGEN

REACTIONS (7)
  - Oxygen consumption increased [Unknown]
  - Interstitial lung disease [Recovered/Resolved]
  - Cough [Unknown]
  - Acute lung injury [Recovered/Resolved]
  - Fatigue [Unknown]
  - Lung opacity [Unknown]
  - Dyspnoea [Unknown]
